FAERS Safety Report 8285814-2 (Version None)
Quarter: 2012Q2

REPORT INFORMATION
  Report Type: 
  Country: None (occurrence: None)
  Receive Date: 20120413
  Receipt Date: 20120406
  Transmission Date: 20120825
  Serious: Yes (Hospitalization)
  Sender: FDA-Public Use
  Company Number: US-ELI_LILLY_AND_COMPANY-US201111004696

PATIENT
  Sex: Female

DRUGS (5)
  1. SIMVASTATIN [Concomitant]
     Dosage: 20 MG, QD
  2. FORTEO [Suspect]
     Indication: OSTEOPOROSIS
     Dosage: 20 UG, QD
     Dates: start: 20111029
  3. FORTEO [Suspect]
     Dosage: 20 UG, QD
     Dates: end: 20120209
  4. BENAZEPRIL HYDROCHLORIDE [Concomitant]
     Indication: HYPERTENSION
     Dosage: 20 MG, BID
  5. FORTEO [Suspect]
     Dosage: 20 UG, QD
     Dates: start: 20120301

REACTIONS (7)
  - DEHYDRATION [None]
  - VASODILATATION [None]
  - ANGIOPATHY [None]
  - INJECTION SITE ERYTHEMA [None]
  - INJECTION SITE RASH [None]
  - FLUSHING [None]
  - HYPERTENSION [None]
